FAERS Safety Report 5391291-1 (Version None)
Quarter: 2007Q3

REPORT INFORMATION
  Report Type: 
  Country: None (occurrence: None)
  Receive Date: 20070719
  Receipt Date: 20070717
  Transmission Date: 20080115
  Serious: Yes (Hospitalization)
  Sender: FDA-Public Use
  Company Number: A0585775A

PATIENT
  Age: 17 Year
  Sex: Female
  Weight: 50.9 kg

DRUGS (4)
  1. PAXIL CR [Suspect]
     Indication: ANXIETY
     Route: 048
     Dates: start: 20021115, end: 20030123
  2. PAXIL [Suspect]
     Indication: DEPRESSION
     Dosage: 20MG PER DAY
     Route: 048
  3. ZOLOFT [Concomitant]
  4. SYNTHROID [Concomitant]

REACTIONS (26)
  - ABNORMAL BEHAVIOUR [None]
  - AGITATION [None]
  - AKATHISIA [None]
  - ANXIETY [None]
  - ASTHENIA [None]
  - CRYING [None]
  - DECREASED APPETITE [None]
  - DEPERSONALISATION [None]
  - DEPRESSION [None]
  - DISTURBANCE IN ATTENTION [None]
  - EMOTIONAL DISTRESS [None]
  - FEELING OF DESPAIR [None]
  - FLAT AFFECT [None]
  - HYPERSOMNIA [None]
  - IMPULSE-CONTROL DISORDER [None]
  - INITIAL INSOMNIA [None]
  - MOOD ALTERED [None]
  - NERVOUSNESS [None]
  - NIGHTMARE [None]
  - SELF MUTILATION [None]
  - SOCIAL AVOIDANT BEHAVIOUR [None]
  - SUICIDAL IDEATION [None]
  - SUICIDE ATTEMPT [None]
  - TREATMENT NONCOMPLIANCE [None]
  - TREMOR [None]
  - WEIGHT DECREASED [None]
